FAERS Safety Report 23512978 (Version 2)
Quarter: 2024Q1

REPORT INFORMATION
  Report Type: Spontaneous
  Country: US (occurrence: US)
  Receive Date: 20240212
  Receipt Date: 20240319
  Transmission Date: 20240410
  Serious: Yes (Other)
  Sender: FDA-Public Use
  Company Number: US-MARINUS PHARMACEUTICALS, INC.-MAR2024000025

PATIENT

DRUGS (2)
  1. ZTALMY [Suspect]
     Active Substance: GANAXOLONE
     Indication: Product used for unknown indication
     Dosage: 3 MILLILITER, TID
     Route: 048
     Dates: end: 2024
  2. ZTALMY [Suspect]
     Active Substance: GANAXOLONE
     Dosage: UNK

REACTIONS (3)
  - Aspiration [Unknown]
  - Increased upper airway secretion [Unknown]
  - Pyrexia [Unknown]

NARRATIVE: CASE EVENT DATE: 20240101
